FAERS Safety Report 13186256 (Version 2)
Quarter: 2017Q4

REPORT INFORMATION
  Report Type: Spontaneous
  Country: US (occurrence: US)
  Receive Date: 20170205
  Receipt Date: 20171113
  Transmission Date: 20180320
  Serious: No
  Sender: FDA-Public Use
  Company Number: US-TEVA-732812ACC

PATIENT
  Sex: Female

DRUGS (12)
  1. MIRALAX [Concomitant]
     Active Substance: POLYETHYLENE GLYCOL 3350
  2. CIPROFLOXACIN. [Concomitant]
     Active Substance: CIPROFLOXACIN
  3. BIOTIN [Concomitant]
     Active Substance: BIOTIN
  4. AMPYRA [Concomitant]
     Active Substance: DALFAMPRIDINE
  5. ATIVAN [Concomitant]
     Active Substance: LORAZEPAM
  6. PROVIGIL [Concomitant]
     Active Substance: MODAFINIL
  7. LYRICA [Concomitant]
     Active Substance: PREGABALIN
  8. VITAMIN D [Concomitant]
     Active Substance: CHOLECALCIFEROL
  9. COPAXONE [Suspect]
     Active Substance: GLATIRAMER ACETATE
     Indication: MULTIPLE SCLEROSIS
     Dosage: 20 MILLIGRAM DAILY;
     Route: 058
     Dates: start: 20090908
  10. EVISTA [Concomitant]
     Active Substance: RALOXIFENE HYDROCHLORIDE
  11. ZANTAC [Concomitant]
     Active Substance: RANITIDINE HYDROCHLORIDE
  12. DITROPAN [Concomitant]
     Active Substance: OXYBUTYNIN CHLORIDE

REACTIONS (2)
  - Mobility decreased [Unknown]
  - Muscular weakness [Not Recovered/Not Resolved]
